FAERS Safety Report 10550768 (Version 1)
Quarter: 2014Q4

REPORT INFORMATION
  Report Type: Spontaneous
  Country: US (occurrence: None)
  Receive Date: 20141028
  Receipt Date: 20141028
  Transmission Date: 20150529
  Serious: No
  Sender: FDA-Public Use
  Company Number: None

PATIENT
  Age: 50 Year
  Sex: Male

DRUGS (1)
  1. CIPROFLOXACIN. [Suspect]
     Active Substance: CIPROFLOXACIN
     Indication: ANDROGENS ABNORMAL
     Dosage: 1 PILL, TAKEN BY MOUTH
     Route: 048

REACTIONS (1)
  - Nerve injury [None]

NARRATIVE: CASE EVENT DATE: 20141022
